FAERS Safety Report 20440992 (Version 1)
Quarter: 2022Q1

REPORT INFORMATION
  Report Type: Spontaneous
  Country: FR (occurrence: FR)
  Receive Date: 20220208
  Receipt Date: 20220208
  Transmission Date: 20220423
  Serious: Yes (Hospitalization, Other)
  Sender: FDA-Public Use
  Company Number: FR-AFSSAPS-AN20220161

PATIENT
  Age: 73 Year
  Sex: Male
  Weight: 96 kg

DRUGS (9)
  1. LIDOCAINE [Suspect]
     Active Substance: LIDOCAINE
     Indication: Pain prophylaxis
     Dosage: 1 DOSAGE FORM, TOTAL
     Route: 065
     Dates: start: 20210831, end: 20210831
  2. REMIFENTANIL [Suspect]
     Active Substance: REMIFENTANIL
     Indication: General anaesthesia
     Dosage: 1 DOSAGE FORM, TOTAL
     Route: 042
     Dates: start: 20210831, end: 20210831
  3. PROPOFOL [Suspect]
     Active Substance: PROPOFOL
     Indication: General anaesthesia
     Dosage: 1 DOSAGE FORM
     Route: 042
     Dates: start: 20210831, end: 20210831
  4. SEVOFLURANE [Suspect]
     Active Substance: SEVOFLURANE
     Indication: General anaesthesia
     Dosage: 1 DOSAGE FORM 1 TOTAL
     Route: 055
     Dates: start: 20210831, end: 20210831
  5. ROCURONIUM BROMIDE [Suspect]
     Active Substance: ROCURONIUM BROMIDE
     Indication: General anaesthesia
     Dosage: 1 DOSAGE FORM 1 TOTAL
     Route: 042
     Dates: start: 20210831, end: 20210831
  6. BETADINE [Suspect]
     Active Substance: POVIDONE-IODINE
     Indication: Infection prophylaxis
     Dosage: 1 DOSAGE FORM 1 TOTAL
     Route: 003
     Dates: start: 20210831, end: 20210831
  7. MIDAZOLAM [Suspect]
     Active Substance: MIDAZOLAM
     Indication: General anaesthesia
     Dosage: 1 DOSAGE FORM 1 TOTAL
     Route: 042
     Dates: start: 20210831, end: 20210831
  8. KETAMINE [Suspect]
     Active Substance: KETAMINE
     Indication: General anaesthesia
     Dosage: 1 DOSAGE FORM 1 TOTAL
     Route: 042
     Dates: start: 20210831, end: 20210831
  9. CHLORHEXIDINE GLUCONATE [Suspect]
     Active Substance: CHLORHEXIDINE GLUCONATE
     Indication: Infection prophylaxis
     Dosage: 1 DOSAGE FORM 1 TOTAL
     Route: 003
     Dates: start: 20210831, end: 20210831

REACTIONS (1)
  - Anaphylactic shock [Recovered/Resolved]

NARRATIVE: CASE EVENT DATE: 20210831
